FAERS Safety Report 5777069-5 (Version None)
Quarter: 2008Q2

REPORT INFORMATION
  Report Type: 
  Country: None (occurrence: None)
  Receive Date: 20080417
  Receipt Date: 20080417
  Transmission Date: 20081010
  Serious: Yes (Life-Threatening)
  Sender: FDA-Public Use
  Company Number: None

PATIENT
  Age: 61 Year
  Sex: Female
  Weight: 108 kg

DRUGS (9)
  1. INSULIN ASPART [Suspect]
     Indication: TYPE 2 DIABETES MELLITUS
     Dosage: 9 U SQ
     Route: 058
     Dates: start: 20080413
  2. INSULIN GLARGINE [Suspect]
     Dosage: 10 U SQ
     Route: 058
     Dates: start: 20080413
  3. ZOFRAN [Concomitant]
  4. BENADRYL [Concomitant]
  5. LOSARTAN POTASSIUM [Concomitant]
  6. LABETALOL HCL [Concomitant]
  7. IMDUR [Concomitant]
  8. COLACE [Concomitant]
  9. DULCOLAX [Concomitant]

REACTIONS (5)
  - BLOOD GLUCOSE DECREASED [None]
  - FALL [None]
  - MENTAL STATUS CHANGES [None]
  - OXYGEN SATURATION DECREASED [None]
  - SOMNOLENCE [None]
